FAERS Safety Report 12722634 (Version 1)
Quarter: 2016Q3

REPORT INFORMATION
  Report Type: Report from Study
  Country: CA (occurrence: CA)
  Receive Date: 20160907
  Receipt Date: 20160907
  Transmission Date: 20161109
  Serious: Yes (Other)
  Sender: FDA-Public Use
  Company Number: CA-GILEAD-2016-0231817

PATIENT
  Age: 50 Year
  Sex: Male

DRUGS (11)
  1. ZOPICLONE [Concomitant]
     Active Substance: ZOPICLONE
  2. LAMIVUDINE. [Concomitant]
     Active Substance: LAMIVUDINE
  3. ABACAVIR. [Concomitant]
     Active Substance: ABACAVIR
  4. TRAZODONE [Concomitant]
     Active Substance: TRAZODONE HYDROCHLORIDE
  5. TENOFOVIR DISOPROXIL FUMARATE. [Suspect]
     Active Substance: TENOFOVIR DISOPROXIL FUMARATE
     Indication: HIV INFECTION
     Dosage: UNK UNK, QOD
     Route: 048
  6. RITONAVIR. [Concomitant]
     Active Substance: RITONAVIR
  7. METHADONE [Concomitant]
     Active Substance: METHADONE HYDROCHLORIDE
  8. TENOFOVIR DISOPROXIL FUMARATE. [Suspect]
     Active Substance: TENOFOVIR DISOPROXIL FUMARATE
     Indication: HEPATITIS B
  9. HALOPERIDOL. [Concomitant]
     Active Substance: HALOPERIDOL
  10. ATAZANAVIR [Concomitant]
     Active Substance: ATAZANAVIR
  11. PERMETHRIN. [Concomitant]
     Active Substance: PERMETHRIN

REACTIONS (2)
  - Renal impairment [Unknown]
  - Wrist fracture [Unknown]
